FAERS Safety Report 23925248 (Version 1)
Quarter: 2024Q2

REPORT INFORMATION
  Report Type: Spontaneous
  Country: US (occurrence: None)
  Receive Date: 20240530
  Receipt Date: 20240530
  Transmission Date: 20240716
  Serious: Yes (Disabling, Other)
  Sender: FDA-Public Use
  Company Number: None

PATIENT
  Age: 72 Year
  Sex: Male
  Weight: 92.25 kg

DRUGS (11)
  1. REPATHA [Suspect]
     Active Substance: EVOLOCUMAB
     Indication: Blood cholesterol increased
     Dates: start: 20240212, end: 20240506
  2. VASCEPA [Concomitant]
     Active Substance: ICOSAPENT ETHYL
  3. METOPROLOL [Concomitant]
     Active Substance: METOPROLOL
  4. TAMSULOSIN HYDROCHLORIDE [Concomitant]
     Active Substance: TAMSULOSIN HYDROCHLORIDE
  5. TADALAFIL [Concomitant]
     Active Substance: TADALAFIL
  6. LIPOSOMAL D3 K2 [Concomitant]
  7. MAGNESIUM TAURATE [Concomitant]
  8. METHYLCOBALAMIN [Concomitant]
     Active Substance: METHYLCOBALAMIN
  9. B1 COMPLEX [Concomitant]
  10. LOW DOSE ASPIRIN [Concomitant]
     Active Substance: ASPIRIN
  11. TURKEY TAIL MUSHROOM [Concomitant]

REACTIONS (5)
  - Back pain [None]
  - Pain in extremity [None]
  - Loss of personal independence in daily activities [None]
  - Urticaria [None]
  - Rash [None]

NARRATIVE: CASE EVENT DATE: 20240506
